FAERS Safety Report 7280822-2 (Version None)
Quarter: 2011Q1

REPORT INFORMATION
  Report Type: 
  Country: None (occurrence: None)
  Receive Date: 20110203
  Receipt Date: 20110203
  Transmission Date: 20110831
  Serious: Yes (Hospitalization)
  Sender: FDA-Public Use
  Company Number: None

PATIENT
  Sex: Male
  Weight: 121 kg

DRUGS (2)
  1. TAXOL [Suspect]
     Dosage: 114 MG
     Dates: end: 20101103
  2. CISPLATIN [Suspect]
     Dosage: 34 MG
     Dates: end: 20101103

REACTIONS (14)
  - CHOLECYSTITIS ACUTE [None]
  - RENAL FAILURE ACUTE [None]
  - SEPSIS [None]
  - SYNCOPE [None]
  - RENAL TUBULAR NECROSIS [None]
  - TUBULOINTERSTITIAL NEPHRITIS [None]
  - DEVICE DISLOCATION [None]
  - JOINT DISLOCATION [None]
  - DEHYDRATION [None]
  - DIALYSIS [None]
  - ANTIBIOTIC RESISTANT STAPHYLOCOCCUS TEST POSITIVE [None]
  - OSTEOARTHRITIS [None]
  - CONDITION AGGRAVATED [None]
  - PYREXIA [None]
